FAERS Safety Report 4964812-8 (Version None)
Quarter: 2006Q2

REPORT INFORMATION
  Report Type: 
  Country: None (occurrence: None)
  Receive Date: 20060403
  Receipt Date: 20060315
  Transmission Date: 20061013
  Serious: Yes (Hospitalization)
  Sender: FDA-Public Use
  Company Number: FRPFM-S-20060053 -V001

PATIENT
  Age: 71 Year
  Sex: Male

DRUGS (2)
  1. NAVELBINE [Suspect]
     Indication: NON-SMALL CELL LUNG CANCER
     Route: 042
     Dates: start: 20060126, end: 20060202
  2. CISPLATIN [Concomitant]

REACTIONS (1)
  - ARTERIAL THROMBOSIS LIMB [None]
